FAERS Safety Report 6635390-2 (Version None)
Quarter: 2010Q1

REPORT INFORMATION
  Report Type: 
  Country: None (occurrence: None)
  Receive Date: 20100315
  Receipt Date: 20100308
  Transmission Date: 20100710
  Serious: Yes (Other)
  Sender: FDA-Public Use
  Company Number: GB-GENENTECH-297859

PATIENT
  Sex: Male
  Weight: 99.1 kg

DRUGS (7)
  1. RITUXAN [Suspect]
     Indication: CHRONIC LYMPHOCYTIC LEUKAEMIA
     Dosage: 500 MG/M2, 1/MONTH
     Route: 042
     Dates: start: 20090723, end: 20091217
  2. RITUXAN [Suspect]
     Dosage: 375 MG/M2, UNK
     Route: 042
  3. FLUDARABINE [Suspect]
     Indication: CHRONIC LYMPHOCYTIC LEUKAEMIA
     Dosage: UNK MG/M2, UNK
     Route: 042
     Dates: start: 20090723, end: 20091217
  4. CYCLOPHOSPHAMIDE [Suspect]
     Indication: CHRONIC LYMPHOCYTIC LEUKAEMIA
     Dosage: UNK
     Route: 042
     Dates: start: 20090723, end: 20091217
  5. CO-TRIMOXAZOLE [Concomitant]
     Indication: DRUG USE FOR UNKNOWN INDICATION
     Dosage: 960 MG, 3/WEEK
     Route: 048
     Dates: start: 20090723
  6. DOMPERIDONE [Concomitant]
     Indication: NAUSEA
     Dosage: 20 MG, Q6H
     Route: 048
     Dates: start: 20090723, end: 20091201
  7. ALLOPURINOL [Concomitant]
     Indication: PROPHYLAXIS
     Dosage: 300 MG, QD
     Route: 048
     Dates: start: 20090723, end: 20090901

REACTIONS (2)
  - MEGAKARYOCYTES ABNORMAL [None]
  - MYELODYSPLASTIC SYNDROME [None]
